FAERS Safety Report 9677817 (Version 1)
Quarter: 2013Q4

REPORT INFORMATION
  Report Type: Spontaneous
  Country: ES (occurrence: ES)
  Receive Date: 20131108
  Receipt Date: 20131108
  Transmission Date: 20140711
  Serious: Yes (Other)
  Sender: FDA-Public Use
  Company Number: ES-SA-2013SA111987

PATIENT
  Age: 65 Year
  Sex: Male

DRUGS (5)
  1. CLEXANE [Suspect]
     Indication: THROMBOSIS PROPHYLAXIS
     Dosage: 40MG
     Route: 058
     Dates: start: 20130201, end: 20130207
  2. PARACETAMOL [Suspect]
     Indication: PAIN
     Dosage: 1-1-1
     Route: 042
     Dates: start: 20130201, end: 20130204
  3. AMPICILINA [Suspect]
     Indication: MENINGITIS MENINGOCOCCAL
     Dosage: 2GR/4H
     Route: 042
     Dates: start: 20130201, end: 20130207
  4. MEROPENEM [Suspect]
     Indication: MENINGITIS MENINGOCOCCAL
     Dosage: 2GR/8H
     Route: 042
     Dates: start: 20130201, end: 20130207
  5. DEXAMETHASONE [Suspect]
     Indication: PRODUCT USED FOR UNKNOWN INDICATION
     Dosage: 4MG/6H X 5 DAYS FOLLOWED 4MG/12H X 3 DAYS
     Route: 042
     Dates: start: 20130201, end: 20130207

REACTIONS (1)
  - Hepatitis [Unknown]
